FAERS Safety Report 5856242-1 (Version None)
Quarter: 2008Q3

REPORT INFORMATION
  Report Type: 
  Country: None (occurrence: None)
  Receive Date: 20080825
  Receipt Date: 20080821
  Transmission Date: 20090109
  Serious: Yes (Hospitalization)
  Sender: FDA-Public Use
  Company Number: A0744152A

PATIENT
  Age: 45 Year
  Sex: Male
  Weight: 100 kg

DRUGS (5)
  1. AVANDIA [Suspect]
     Indication: DIABETES MELLITUS
     Dosage: 4MG TWICE PER DAY
     Route: 048
     Dates: start: 20011119, end: 20030201
  2. GLUCOPHAGE [Concomitant]
     Dates: start: 20040101
  3. METFORMIN [Concomitant]
     Dates: start: 20040101
  4. VARDENAFIL [Concomitant]
  5. RANITIDINE [Concomitant]

REACTIONS (2)
  - CARDIAC DISORDER [None]
  - LIVER INJURY [None]
